FAERS Safety Report 8553564-0 (Version None)
Quarter: 2012Q3

REPORT INFORMATION
  Report Type: 
  Country: None (occurrence: None)
  Receive Date: 20120731
  Receipt Date: 20120725
  Transmission Date: 20120928
  Serious: No
  Sender: FDA-Public Use
  Company Number: US-PFIZER INC-2012180499

PATIENT
  Sex: Female
  Weight: 59 kg

DRUGS (2)
  1. PREMPRO [Suspect]
     Indication: MENOPAUSE
     Dosage: 0.3MG/1.5MG, 1X/DAY
     Route: 048
     Dates: start: 20020101, end: 20120722
  2. LISINOPRIL [Concomitant]
     Indication: HYPERTENSION
     Dosage: UNK, 1X/DAY

REACTIONS (7)
  - IRRITABILITY [None]
  - HORMONE LEVEL ABNORMAL [None]
  - INSOMNIA [None]
  - DISTURBANCE IN ATTENTION [None]
  - CRYING [None]
  - NIGHT SWEATS [None]
  - FEELING HOT [None]
